FAERS Safety Report 12641249 (Version 3)
Quarter: 2017Q3

REPORT INFORMATION
  Report Type: Spontaneous
  Country: US (occurrence: US)
  Receive Date: 20160810
  Receipt Date: 20170913
  Transmission Date: 20171127
  Serious: No
  Sender: FDA-Public Use
  Company Number: US-PFIZER INC-2016361452

PATIENT
  Age: 62 Year
  Sex: Female

DRUGS (2)
  1. PREDNISONE. [Suspect]
     Active Substance: PREDNISONE
     Indication: RHEUMATOID ARTHRITIS
     Dosage: UNK
  2. XELJANZ [Suspect]
     Active Substance: TOFACITINIB CITRATE
     Indication: RHEUMATOID ARTHRITIS
     Dosage: 10 MG, DAILY (2 (TWO) TABLET) (1 TAB BID)
     Route: 048
     Dates: start: 20160614, end: 20160722

REACTIONS (4)
  - Musculoskeletal pain [Unknown]
  - Drug dose omission [Unknown]
  - Pain in extremity [Unknown]
  - Nasal congestion [Unknown]

NARRATIVE: CASE EVENT DATE: 20161124
